FAERS Safety Report 6230706-3 (Version None)
Quarter: 2009Q2

REPORT INFORMATION
  Report Type: 
  Country: None (occurrence: None)
  Receive Date: 20090616
  Receipt Date: 20090612
  Transmission Date: 20091009
  Serious: Yes (Death, Hospitalization)
  Sender: FDA-Public Use
  Company Number: DE-BRISTOL-MYERS SQUIBB COMPANY-14646764

PATIENT
  Age: 64 Year
  Sex: Female
  Weight: 56 kg

DRUGS (4)
  1. TAXOL [Suspect]
     Indication: NON-SMALL CELL LUNG CANCER
     Dosage: IST ADMIN 23SEP08
     Route: 042
     Dates: start: 20081104, end: 20081104
  2. CISPLATIN [Suspect]
     Indication: NON-SMALL CELL LUNG CANCER
     Dosage: 23SEP08-11NOV08: 80MG 26NOV08 AND 03DEC08 - 50MG/M2 (=83MG)
     Dates: start: 20081203, end: 20081203
  3. VINORELBINE [Suspect]
     Indication: NON-SMALL CELL LUNG CANCER
     Dosage: ON 26NOV08 AND 03DEC08 - 20MG/M2 (=33MG)
     Dates: start: 20081203, end: 20081203
  4. RADIATION THERAPY [Suspect]
     Indication: NON-SMALL CELL LUNG CANCER
     Dosage: 1 DF- 45 GY
     Dates: start: 20081212, end: 20081212

REACTIONS (3)
  - GENERAL PHYSICAL HEALTH DETERIORATION [None]
  - PULMONARY EMBOLISM [None]
  - PULMONARY HAEMORRHAGE [None]
